FAERS Safety Report 12916248 (Version 1)
Quarter: 2016Q4

REPORT INFORMATION
  Report Type: Spontaneous
  Country: US (occurrence: US)
  Receive Date: 20161107
  Receipt Date: 20161107
  Transmission Date: 20170207
  Serious: Yes (Other)
  Sender: FDA-Public Use
  Company Number: None

PATIENT
  Age: 67 Year
  Sex: Female
  Weight: 47.22 kg

DRUGS (20)
  1. SINEMET [Concomitant]
     Active Substance: CARBIDOPA\LEVODOPA
  2. PREDNISONE. [Concomitant]
     Active Substance: PREDNISONE
  3. IMITREX [Concomitant]
     Active Substance: SUMATRIPTAN SUCCINATE
  4. TYLENOL EXTRA STRENGTH [Concomitant]
     Active Substance: ACETAMINOPHEN
  5. DOXEPIN HYDROCHLORIDE. [Suspect]
     Active Substance: DOXEPIN HYDROCHLORIDE
     Indication: SLEEP DISORDER
     Dosage: 4 FL. OZ. (118 ML) 10MG./ML. STOP TRAZODONE - DOXEPIN TAKE 5-10MG Q HS (I ONLY TOOK 5MG) AT BEDTIME BY MOUTH (PLAIN, OR WITH H2O, OR WITH JUICE)
     Route: 048
     Dates: start: 20160801, end: 20160907
  6. METHADONE [Concomitant]
     Active Substance: METHADONE HYDROCHLORIDE
  7. DIPHENHYDRAMINE. [Concomitant]
     Active Substance: DIPHENHYDRAMINE
  8. BACLOFEN. [Concomitant]
     Active Substance: BACLOFEN
  9. DULCOLAX NOS [Concomitant]
     Active Substance: BISACODYL OR DOCUSATE SODIUM
  10. ALENDRONATE [Concomitant]
     Active Substance: ALENDRONATE SODIUM
  11. TRAZODONE [Concomitant]
     Active Substance: TRAZODONE HYDROCHLORIDE
  12. MULTIVITS [Concomitant]
  13. PROPRANOLOL [Concomitant]
     Active Substance: PROPRANOLOL\PROPRANOLOL HYDROCHLORIDE
  14. CALCIUM + VIT. D [Concomitant]
  15. PROGESTERONE. [Concomitant]
     Active Substance: PROGESTERONE
  16. FOLIC ACID. [Concomitant]
     Active Substance: FOLIC ACID
  17. KLONOPIN [Concomitant]
     Active Substance: CLONAZEPAM
  18. CANE OR WALKER [Concomitant]
  19. ESTRADIOL. [Concomitant]
     Active Substance: ESTRADIOL
  20. COLACE [Concomitant]
     Active Substance: DOCUSATE SODIUM

REACTIONS (6)
  - Oropharyngeal pain [None]
  - Confusional state [None]
  - Withdrawal syndrome [None]
  - Dysphagia [None]
  - Throat irritation [None]
  - Nausea [None]

NARRATIVE: CASE EVENT DATE: 20160907
